FAERS Safety Report 21020758 (Version 2)
Quarter: 2022Q3

REPORT INFORMATION
  Report Type: Report from Study
  Country: US (occurrence: US)
  Receive Date: 20220629
  Receipt Date: 20220810
  Transmission Date: 20221027
  Serious: Yes (Hospitalization, Other)
  Sender: FDA-Public Use
  Company Number: US-BRISTOL-MYERS SQUIBB COMPANY-2022-059507

PATIENT
  Age: 75 Year
  Sex: Female
  Weight: 61.69 kg

DRUGS (2)
  1. REVLIMID [Suspect]
     Active Substance: LENALIDOMIDE
     Indication: Plasma cell myeloma in remission
     Dosage: DAILY 21 DAYS
     Route: 048
  2. REVLIMID [Suspect]
     Active Substance: LENALIDOMIDE
     Dosage: DAILY TAKE WITH A FULL GLASS OF WATER DAILY, DAYS 1 THROUGH 21 OF A 28 DAY CYCLE.
     Route: 048

REACTIONS (6)
  - Cardiac failure [Recovering/Resolving]
  - Cerebrovascular accident [Unknown]
  - Fall [Unknown]
  - Hip fracture [Unknown]
  - Thinking abnormal [Unknown]
  - Anaemia [Recovering/Resolving]
